FAERS Safety Report 10524660 (Version 1)
Quarter: 2014Q4

REPORT INFORMATION
  Report Type: Spontaneous
  Country: DE (occurrence: DE)
  Receive Date: 20141017
  Receipt Date: 20141017
  Transmission Date: 20150528
  Serious: Yes (Other)
  Sender: FDA-Public Use
  Company Number: DE-TEVA-515201GER

PATIENT
  Age: 69 Year
  Sex: Female

DRUGS (5)
  1. METHOTREXATE [Suspect]
     Active Substance: METHOTREXATE
     Indication: B-CELL LYMPHOMA
     Dosage: INTRAVITREAL; 0.4MG
     Route: 031
  2. RITUXIMAB [Suspect]
     Active Substance: RITUXIMAB
     Indication: B-CELL LYMPHOMA
     Dosage: INTRAVITREAL
     Route: 031
  3. PREDNISOLONE. [Concomitant]
     Active Substance: PREDNISOLONE
     Indication: B-CELL LYMPHOMA
     Dosage: PREDNISOLONE 1% EVERY 2 HOUR
     Route: 047
  4. DORZOLAMIDE/TIMOLOL EYE DROPS [Concomitant]
     Indication: INTRAOCULAR PRESSURE INCREASED
  5. PREDNISOLONE. [Concomitant]
     Active Substance: PREDNISOLONE
     Indication: B-CELL LYMPHOMA
     Dosage: SYSTEMIC; 1MG PER KG BODY WEIGHT
     Route: 065

REACTIONS (1)
  - Glaucoma [Recovered/Resolved]
